FAERS Safety Report 9495036 (Version 1)
Quarter: 2013Q3

REPORT INFORMATION
  Report Type: Spontaneous
  Country: US (occurrence: US)
  Receive Date: 20130903
  Receipt Date: 20130903
  Transmission Date: 20140515
  Serious: No
  Sender: FDA-Public Use
  Company Number: US-TEVA-430116USA

PATIENT
  Age: 23 Year
  Sex: Female
  Weight: 79.45 kg

DRUGS (2)
  1. PLAN B ONE-STEP [Suspect]
     Indication: POST COITAL CONTRACEPTION
     Dosage: 1.5 MILLIGRAM DAILY;
     Route: 048
     Dates: start: 20130807, end: 20130807
  2. ALBUTEROL [Concomitant]
     Indication: ASTHMA

REACTIONS (5)
  - Abdominal distension [Not Recovered/Not Resolved]
  - Mood altered [Not Recovered/Not Resolved]
  - Inappropriate schedule of drug administration [Unknown]
  - Pelvic pain [Not Recovered/Not Resolved]
  - Menstruation delayed [Not Recovered/Not Resolved]
